FAERS Safety Report 4817069-2 (Version None)
Quarter: 2005Q4

REPORT INFORMATION
  Report Type: 
  Country: None (occurrence: None)
  Receive Date: 20051101
  Receipt Date: 20051017
  Transmission Date: 20060501
  Serious: Yes (Other)
  Sender: FDA-Public Use
  Company Number: US-AMGEN-US154517

PATIENT
  Sex: Female

DRUGS (8)
  1. ENBREL [Suspect]
     Indication: PSORIASIS
     Dates: start: 20041223, end: 20050730
  2. ENBREL [Suspect]
     Dates: start: 20050930
  3. METFORMIN [Concomitant]
  4. WELLBUTRIN [Concomitant]
  5. LAMOTRIGINE [Concomitant]
  6. LISINOPRIL [Concomitant]
  7. XENICAL [Concomitant]
  8. ALLEGRA [Concomitant]

REACTIONS (5)
  - ABORTION SPONTANEOUS [None]
  - CONDITION AGGRAVATED [None]
  - DRUG EXPOSURE DURING PREGNANCY [None]
  - PREGNANCY [None]
  - PSORIASIS [None]
